FAERS Safety Report 25269514 (Version 1)
Quarter: 2025Q2

REPORT INFORMATION
  Report Type: Report from Study
  Country: NL (occurrence: NL)
  Receive Date: 20250505
  Receipt Date: 20250505
  Transmission Date: 20250717
  Serious: Yes (Death)
  Sender: BAYER HEALTHCARE PHARMACEUTICALS INC.
  Company Number: NL-BAYER-2025A060421

PATIENT
  Age: 68 Year
  Sex: Male

DRUGS (1)
  1. BETAFERON [Suspect]
     Active Substance: INTERFERON BETA-1B
     Indication: Multiple sclerosis
     Dosage: 1 DF, QOD
     Route: 058
     Dates: start: 20180723

REACTIONS (1)
  - Death [Fatal]

NARRATIVE: CASE EVENT DATE: 20250125
